FAERS Safety Report 19369289 (Version 2)
Quarter: 2021Q2

REPORT INFORMATION
  Report Type: Spontaneous
  Country: US (occurrence: US)
  Receive Date: 20210603
  Receipt Date: 20210609
  Transmission Date: 20210717
  Serious: Yes (Other)
  Sender: FDA-Public Use
  Company Number: US-PFIZER INC-2021404993

PATIENT
  Age: 76 Year

DRUGS (1)
  1. CIPROFLOXACIN. [Suspect]
     Active Substance: CIPROFLOXACIN
     Indication: URINARY TRACT INFECTION
     Dosage: UNK

REACTIONS (10)
  - Osteomyelitis [Unknown]
  - Inflammation [Unknown]
  - Hypersensitivity [Unknown]
  - Decreased appetite [Unknown]
  - Abdominal discomfort [Unknown]
  - Illness [Unknown]
  - Memory impairment [Unknown]
  - Fatigue [Unknown]
  - Crepitations [Unknown]
  - Asthenia [Unknown]
